FAERS Safety Report 7421015-5 (Version None)
Quarter: 2011Q2

REPORT INFORMATION
  Report Type: 
  Country: None (occurrence: None)
  Receive Date: 20110418
  Receipt Date: 20110408
  Transmission Date: 20111010
  Serious: Yes (Other)
  Sender: FDA-Public Use
  Company Number: PHHY2011GB29200

PATIENT
  Age: 78 Year
  Sex: Female
  Weight: 56 kg

DRUGS (12)
  1. PREDNISOLONE [Concomitant]
     Dates: start: 20110207, end: 20110212
  2. SERETIDE [Concomitant]
     Dates: start: 20110207
  3. LEVOTHYROXINE SODIUM [Concomitant]
     Dates: start: 20101214
  4. ALBUTEROL SULFATE AUTOHALER [Concomitant]
     Dates: start: 20101214, end: 20110111
  5. TRAMADOL [Concomitant]
     Dates: start: 20101213, end: 20110110
  6. DOXYCYCLINE [Concomitant]
     Dates: start: 20110207, end: 20110214
  7. DOXYCYCLINE [Concomitant]
     Dates: start: 20110111, end: 20110118
  8. TIOTROPIUM BROMIDE [Concomitant]
     Dates: start: 20110307
  9. PREDNISOLONE [Concomitant]
     Dates: start: 20110111, end: 20110116
  10. SERETIDE [Concomitant]
     Dates: start: 20101214, end: 20110111
  11. ALENDRONATE SODIUM [Suspect]
     Dosage: 70 MG, QW
     Dates: start: 20110330
  12. ALBUTEROL SULFATE AUTOHALER [Concomitant]
     Dates: start: 20110207

REACTIONS (1)
  - HICCUPS [None]
